FAERS Safety Report 6408962-8 (Version None)
Quarter: 2009Q4

REPORT INFORMATION
  Report Type: 
  Country: None (occurrence: None)
  Receive Date: 20091019
  Receipt Date: 20091007
  Transmission Date: 20100525
  Serious: Yes (Death, Hospitalization)
  Sender: FDA-Public Use
  Company Number: 2009AL006477

PATIENT
  Age: 45 Year
  Sex: Male

DRUGS (1)
  1. FEVERALL [Suspect]
     Indication: INFLUENZA LIKE ILLNESS
     Dosage: 650 MG
     Route: 054

REACTIONS (5)
  - ACUTE HEPATIC FAILURE [None]
  - BLOOD LACTIC ACID INCREASED [None]
  - DRUG TOXICITY [None]
  - HEPATIC ENCEPHALOPATHY [None]
  - HEPATITIS FULMINANT [None]
